FAERS Safety Report 5373017-0 (Version None)
Quarter: 2007Q2

REPORT INFORMATION
  Report Type: 
  Country: None (occurrence: None)
  Receive Date: 20070619
  Receipt Date: 20070330
  Transmission Date: 20071010
  Serious: No
  Sender: FDA-Public Use
  Company Number: 2007US000719

PATIENT
  Age: 51 Year
  Sex: Female

DRUGS (1)
  1. VESICARE [Suspect]
     Indication: POLLAKIURIA
     Dosage: 5 MG, 10 MG
     Dates: start: 20061201, end: 20070201

REACTIONS (1)
  - SWELLING [None]
